FAERS Safety Report 4402335-5 (Version None)
Quarter: 2004Q3

REPORT INFORMATION
  Report Type: 
  Country: None (occurrence: None)
  Receive Date: 20040720
  Receipt Date: 20040714
  Transmission Date: 20050211
  Serious: Yes (Death, Hospitalization)
  Sender: FDA-Public Use
  Company Number: PH-BRISTOL-MYERS SQUIBB COMPANY-12645362

PATIENT
  Age: 47 Year
  Sex: Female
  Weight: 58 kg

DRUGS (3)
  1. HOLOXAN [Suspect]
     Indication: CHEMOTHERAPY
     Dosage: LOT #S 4A122F + 4A108B
     Route: 042
     Dates: start: 20040702, end: 20040702
  2. UROMITEXAN [Suspect]
     Dosage: LOT # 3M952F
     Route: 042
     Dates: start: 20040702, end: 20040702
  3. CISPLATIN [Suspect]
     Indication: CHEMOTHERAPY
     Dosage: LOT # 302549
     Route: 042
     Dates: start: 20040702, end: 20040702

REACTIONS (7)
  - ARTHRALGIA [None]
  - CHILLS [None]
  - DEATH [None]
  - LEUKOPENIA [None]
  - MYALGIA [None]
  - PYREXIA [None]
  - RHINORRHOEA [None]
